FAERS Safety Report 8832166 (Version 2)
Quarter: 2012Q4

REPORT INFORMATION
  Report Type: 
  Country: JP (occurrence: JP)
  Receive Date: 20121009
  Receipt Date: 20121108
  Transmission Date: 20130627
  Serious: Yes (Hospitalization)
  Sender: FDA-Public Use
  Company Number: JP-ROCHE-756344

PATIENT
  Age: 67 Year
  Sex: Female

DRUGS (42)
  1. ACTEMRA [Suspect]
     Indication: RHEUMATOID ARTHRITIS
     Route: 041
     Dates: start: 20100520, end: 20100520
  2. ACTEMRA [Suspect]
     Route: 041
     Dates: start: 20090521, end: 20090521
  3. ACTEMRA [Suspect]
     Route: 041
     Dates: start: 20090625, end: 20090625
  4. ACTEMRA [Suspect]
     Route: 041
     Dates: start: 20090723, end: 20090723
  5. ACTEMRA [Suspect]
     Route: 041
     Dates: start: 20090820, end: 20090820
  6. ACTEMRA [Suspect]
     Route: 041
     Dates: start: 20090917, end: 20090917
  7. ACTEMRA [Suspect]
     Route: 041
     Dates: start: 20091015, end: 20091015
  8. ACTEMRA [Suspect]
     Dosage: ACTION TAKEN: UNKNOWN
     Route: 041
     Dates: start: 20091112, end: 20091112
  9. ACTEMRA [Suspect]
     Route: 041
     Dates: start: 20091210, end: 20091210
  10. ACTEMRA [Suspect]
     Route: 041
     Dates: start: 20100107, end: 20100107
  11. ACTEMRA [Suspect]
     Route: 041
     Dates: start: 20100204, end: 20100204
  12. ACTEMRA [Suspect]
     Route: 041
     Dates: start: 2010, end: 20101202
  13. ACTEMRA [Suspect]
     Route: 041
     Dates: start: 20100715, end: 20100715
  14. ACTEMRA [Suspect]
     Route: 041
     Dates: start: 20100812, end: 20100812
  15. ACTEMRA [Suspect]
     Route: 041
     Dates: start: 20100909, end: 20100909
  16. ACTEMRA [Suspect]
     Route: 041
     Dates: start: 20101007, end: 20101007
  17. ACTEMRA [Suspect]
     Route: 041
     Dates: start: 20101104, end: 20101104
  18. ACTEMRA [Suspect]
     Route: 041
     Dates: start: 20101202, end: 20101202
  19. ACTEMRA [Suspect]
     Route: 041
     Dates: start: 20110116, end: 20110116
  20. ACTEMRA [Suspect]
     Route: 041
     Dates: start: 20110203, end: 20110203
  21. ACTEMRA [Suspect]
     Route: 041
     Dates: start: 20110310, end: 20110310
  22. ACTEMRA [Suspect]
     Route: 041
     Dates: start: 20110407, end: 20110407
  23. ACTEMRA [Suspect]
     Route: 041
     Dates: start: 20110512, end: 20110512
  24. ACTEMRA [Suspect]
     Route: 041
     Dates: start: 20110609, end: 20110609
  25. ACTEMRA [Suspect]
     Route: 041
     Dates: start: 20111215, end: 20111215
  26. ACTEMRA [Suspect]
     Route: 041
     Dates: start: 20120112, end: 20120112
  27. ACTEMRA [Suspect]
     Route: 041
     Dates: start: 20120209, end: 20120209
  28. ACTEMRA [Suspect]
     Route: 041
     Dates: start: 20120308, end: 20120308
  29. ACTEMRA [Suspect]
     Route: 041
     Dates: start: 20120404, end: 20120404
  30. ACTEMRA [Suspect]
     Route: 041
     Dates: start: 20120502, end: 20120502
  31. ACTEMRA [Suspect]
     Route: 041
     Dates: start: 20120530, end: 20120530
  32. ACTEMRA [Suspect]
     Route: 041
     Dates: start: 20120627, end: 20120627
  33. ACTEMRA [Suspect]
     Route: 041
     Dates: start: 20120725, end: 20120725
  34. ACTEMRA [Suspect]
     Route: 041
     Dates: start: 20120822, end: 20120822
  35. ACTEMRA [Suspect]
     Route: 041
     Dates: start: 20120919, end: 20120919
  36. ACTEMRA [Suspect]
     Route: 041
  37. RHEUMATREX [Suspect]
     Indication: RHEUMATOID ARTHRITIS
     Route: 048
  38. PREDNISOLONE [Suspect]
     Indication: RHEUMATOID ARTHRITIS
     Route: 048
  39. CELCOX [Concomitant]
     Indication: RHEUMATOID ARTHRITIS
     Dosage: DRUG NAME REPORTED: CELECOX (CELECOXIB)
     Route: 048
  40. STOGAR [Concomitant]
     Indication: GASTRITIS
     Route: 048
  41. MUCOSTA [Concomitant]
     Indication: GASTRITIS
     Dosage: DOSE FORM: PERORAL AGENT
     Route: 048
  42. FOLIAMIN [Concomitant]
     Indication: PROPHYLAXIS
     Dosage: DOSE FORM: PERORAL AGENT
     Route: 048

REACTIONS (7)
  - Acute tonsillitis [Recovered/Resolved]
  - Benign mediastinal neoplasm [Recovered/Resolved]
  - Cough [Recovered/Resolved]
  - Nasopharyngitis [Recovered/Resolved]
  - Stomatitis [Recovered/Resolved]
  - Sudden hearing loss [Not Recovered/Not Resolved]
  - Bronchitis [Recovering/Resolving]
